FAERS Safety Report 11717929 (Version 1)
Quarter: 2015Q4

REPORT INFORMATION
  Report Type: Spontaneous
  Country: JP (occurrence: JP)
  Receive Date: 20151110
  Receipt Date: 20151110
  Transmission Date: 20160304
  Serious: Yes (Other)
  Sender: FDA-Public Use
  Company Number: JP-009507513-1511JPN003837

PATIENT
  Age: 60 Year
  Sex: Male

DRUGS (3)
  1. VANCOMYCIN [Concomitant]
     Active Substance: VANCOMYCIN
     Indication: STAPHYLOCOCCAL INFECTION
     Dosage: DAILY DOSE UNKNOWN
     Route: 065
     Dates: start: 2015
  2. CUBICIN [Suspect]
     Active Substance: DAPTOMYCIN
     Indication: STAPHYLOCOCCAL INFECTION
     Dosage: DAILY DOSE UNKNOWN
     Route: 051
     Dates: start: 2015, end: 2015
  3. TEICOPLANIN [Concomitant]
     Active Substance: TEICOPLANIN
     Indication: STAPHYLOCOCCAL INFECTION
     Dosage: DAILY DOSE UNKNOWN
     Route: 051
     Dates: start: 2015

REACTIONS (1)
  - Aplasia pure red cell [Recovered/Resolved]

NARRATIVE: CASE EVENT DATE: 2015
